FAERS Safety Report 8418056-8 (Version None)
Quarter: 2012Q2

REPORT INFORMATION
  Report Type: 
  Country: None (occurrence: None)
  Receive Date: 20120604
  Receipt Date: 20120604
  Transmission Date: 20120825
  Serious: No
  Sender: FDA-Public Use
  Company Number: None

PATIENT
  Age: 79 Year
  Sex: Male
  Weight: 97.5234 kg

DRUGS (3)
  1. KLONOPIN [Suspect]
     Indication: DEPRESSION
     Dosage: TAKE 1 QHS #30
  2. KLONOPIN [Suspect]
     Indication: OBSESSIVE-COMPULSIVE DISORDER
     Dosage: TAKE 1 QHS #30
  3. KLONOPIN [Suspect]
     Indication: PANIC DISORDER
     Dosage: TAKE 1 QHS #30

REACTIONS (2)
  - DRUG INEFFECTIVE [None]
  - PRODUCT SUBSTITUTION ISSUE [None]
